FAERS Safety Report 8393441-1 (Version None)
Quarter: 2012Q2

REPORT INFORMATION
  Report Type: 
  Country: None (occurrence: None)
  Receive Date: 20120529
  Receipt Date: 20120518
  Transmission Date: 20120825
  Serious: Yes (Other)
  Sender: FDA-Public Use
  Company Number: CHPA2012NZ010926

PATIENT
  Sex: Female

DRUGS (2)
  1. HABITROL [Suspect]
     Indication: SMOKING CESSATION THERAPY
     Dosage: UNK, UNK
     Route: 062
  2. NICOTINE [Suspect]
     Indication: SMOKING CESSATION THERAPY
     Route: 002

REACTIONS (2)
  - ANOSMIA [None]
  - AGEUSIA [None]
